FAERS Safety Report 18293971 (Version 2)
Quarter: 2020Q4

REPORT INFORMATION
  Report Type: Spontaneous
  Country: NL (occurrence: NL)
  Receive Date: 20200921
  Receipt Date: 20201012
  Transmission Date: 20210113
  Serious: Yes (Life-Threatening, Hospitalization, Disabling)
  Sender: FDA-Public Use
  Company Number: NL-BAXTER-2020BAX018977

PATIENT
  Sex: Female
  Weight: 73.2 kg

DRUGS (4)
  1. CEFTRIAXON INFVLST 10 MG/ML [Suspect]
     Active Substance: CEFTRIAXONE SODIUM
     Indication: KLEBSIELLA BACTERAEMIA
     Dosage: INFUSION SOLUTION, 10 MG/ML (MILLIGRAMS PER MILLILITER)
     Route: 065
     Dates: start: 20200822, end: 20200826
  2. METRONIDAZOL 5 MG/ML IN VIAFLO, OPLOSSING VOOR INTRAVEINEUZE INFUSIE [Suspect]
     Active Substance: METRONIDAZOLE
     Indication: KLEBSIELLA BACTERAEMIA
     Route: 065
     Dates: start: 20200822, end: 20200826
  3. DABIGATRAN ETEXILATE CAPSULE 110 MG [Concomitant]
     Active Substance: DABIGATRAN ETEXILATE
     Indication: PRODUCT USED FOR UNKNOWN INDICATION
     Dosage: CAPSULE, 110 MG (MILLIGRAM)
     Route: 065
  4. PROPOFOL. [Concomitant]
     Active Substance: PROPOFOL
     Indication: PRODUCT USED FOR UNKNOWN INDICATION
     Dosage: INJECTION/INFUSION, 5 MG/ML
     Route: 065

REACTIONS (4)
  - Rash erythematous [Recovered/Resolved]
  - Seizure [Recovered/Resolved]
  - Postictal paralysis [Recovered/Resolved]
  - Delirium [Recovered/Resolved]
